FAERS Safety Report 5068884-4 (Version None)
Quarter: 2006Q3

REPORT INFORMATION
  Report Type: 
  Country: None (occurrence: None)
  Receive Date: 20060802
  Receipt Date: 20060518
  Transmission Date: 20061208
  Serious: No
  Sender: FDA-Public Use
  Company Number: US-BRISTOL-MYERS SQUIBB COMPANY-13382031

PATIENT
  Age: 86 Year
  Sex: Female
  Weight: 48 kg

DRUGS (9)
  1. COUMADIN [Suspect]
     Indication: ATRIAL FIBRILLATION
  2. LANOXIN [Concomitant]
  3. VITAMIN E [Concomitant]
  4. VITAMIN A [Concomitant]
  5. VITAMIN B COMPLEX CAP [Concomitant]
  6. MULTI-VITAMIN [Concomitant]
  7. COENZYME Q10 [Concomitant]
  8. ESTER-C [Concomitant]
  9. GINKOBA [Concomitant]

REACTIONS (2)
  - CONTUSION [None]
  - DIZZINESS [None]
